FAERS Safety Report 10170465 (Version 1)
Quarter: 2014Q2

REPORT INFORMATION
  Report Type: Spontaneous
  Country: US (occurrence: US)
  Receive Date: 20140513
  Receipt Date: 20140513
  Transmission Date: 20141212
  Serious: Yes (Other)
  Sender: FDA-Public Use
  Company Number: US-PFIZER INC-2014128415

PATIENT
  Sex: Male

DRUGS (2)
  1. AZITHROMYCIN [Suspect]
     Indication: BRONCHITIS
     Dosage: 250 MG, TWO TABLETS THE FIRST DAY
  2. AZITHROMYCIN [Suspect]
     Dosage: 250 MG, 1 TABLET DAILY ON DAYS 2 THROUGH 5

REACTIONS (3)
  - Suicidal ideation [Unknown]
  - Ageusia [Not Recovered/Not Resolved]
  - Anosmia [Recovered/Resolved]
